FAERS Safety Report 7685916-5 (Version None)
Quarter: 2011Q3

REPORT INFORMATION
  Report Type: 
  Country: None (occurrence: None)
  Receive Date: 20110815
  Receipt Date: 20110815
  Transmission Date: 20111222
  Serious: Yes (Life-Threatening)
  Sender: FDA-Public Use
  Company Number: None

PATIENT
  Age: 34 Year
  Sex: Female
  Weight: 63.5036 kg

DRUGS (3)
  1. PRAVASTATIN [Suspect]
     Indication: BLOOD CHOLESTEROL INCREASED
     Dosage: 40 MG 1 A DAY
     Dates: start: 20101001, end: 20110718
  2. PRAVASTATIN [Suspect]
     Indication: LOW DENSITY LIPOPROTEIN INCREASED
     Dosage: 40 MG 1 A DAY
     Dates: start: 20101001, end: 20110718
  3. PRAVASTATIN [Suspect]
     Indication: HIGH DENSITY LIPOPROTEIN INCREASED
     Dosage: 40 MG 1 A DAY
     Dates: start: 20101001, end: 20110718

REACTIONS (10)
  - DIZZINESS [None]
  - TENDERNESS [None]
  - INFLUENZA LIKE ILLNESS [None]
  - HEART RATE INCREASED [None]
  - OROPHARYNGEAL PAIN [None]
  - PILOERECTION [None]
  - DYSPNOEA [None]
  - HAEMORRHAGE [None]
  - ASTHENIA [None]
  - DISCOMFORT [None]
